FAERS Safety Report 8927713 (Version 4)
Quarter: 2012Q4

REPORT INFORMATION
  Report Type: 
  Country: BR (occurrence: BR)
  Receive Date: 20121127
  Receipt Date: 20121205
  Transmission Date: 20130627
  Serious: Yes (Hospitalization, Other)
  Sender: FDA-Public Use
  Company Number: PHHY2012BR106825

PATIENT
  Age: 48 Year
  Sex: Female

DRUGS (4)
  1. TRILEPTAL [Suspect]
     Indication: EPILEPSY
     Dosage: 2 and a half tablet daily
     Route: 048
  2. TRILEPTAL [Suspect]
     Dosage: 3  tablets daily
     Route: 048
  3. GARDENAL ^AVENTIS^ [Concomitant]
     Indication: EPILEPSY
     Dosage: 1.5 tablet daily
     Route: 048
  4. RIVOTRIL [Concomitant]
     Indication: EPILEPSY
     Dosage: 1 tablet daily
     Route: 048

REACTIONS (9)
  - Injury [Recovering/Resolving]
  - Fall [Recovering/Resolving]
  - Drug dependence [Recovering/Resolving]
  - Epilepsy [Unknown]
  - Convulsion [Recovering/Resolving]
  - Feeling abnormal [Recovering/Resolving]
  - Cardiac disorder [Unknown]
  - Abasia [Unknown]
  - Nervousness [Recovering/Resolving]
